FAERS Safety Report 14456965 (Version 2)
Quarter: 2019Q1

REPORT INFORMATION
  Report Type: Other
  Country: US (occurrence: US)
  Receive Date: 20180130
  Receipt Date: 20190126
  Transmission Date: 20190417
  Serious: No
  Sender: FDA-Public Use
  Company Number: US-ACORDA-ACO_138227_2017

PATIENT
  Sex: Female

DRUGS (1)
  1. AMPYRA [Suspect]
     Active Substance: DALFAMPRIDINE
     Indication: MULTIPLE SCLEROSIS
     Dosage: 10 MG, BID (EVERY 12 HOURS)
     Route: 048
     Dates: start: 201504

REACTIONS (4)
  - Memory impairment [Not Recovered/Not Resolved]
  - Therapy cessation [Unknown]
  - Loss of personal independence in daily activities [Not Recovered/Not Resolved]
  - Mental impairment [Not Recovered/Not Resolved]
